FAERS Safety Report 24191141 (Version 2)
Quarter: 2024Q3

REPORT INFORMATION
  Report Type: Spontaneous
  Country: US (occurrence: US)
  Receive Date: 20240808
  Receipt Date: 20240902
  Transmission Date: 20241017
  Serious: Yes (Hospitalization, Other)
  Sender: TEVA
  Company Number: US-TEVA-VS-3228069

PATIENT
  Sex: Female

DRUGS (5)
  1. METOPROLOL [Suspect]
     Active Substance: METOPROLOL
     Indication: Ventricular extrasystoles
     Dosage: METOPROLOL SUCCINATE 12.5MG DAILY WAS STARTED AND UPTITRATED
     Route: 065
  2. SOTALOL [Suspect]
     Active Substance: SOTALOL\SOTALOL HYDROCHLORIDE
     Indication: Ventricular extrasystoles
     Route: 065
  3. AMIODARONE [Suspect]
     Active Substance: AMIODARONE
     Indication: Ventricular extrasystoles
     Dosage: AMIODARON TAPER WAS STARTED
     Route: 065
  4. SPIRONOLACTONE [Concomitant]
     Active Substance: SPIRONOLACTONE
     Indication: Ventricular extrasystoles
     Route: 065
  5. LOSARTAN [Concomitant]
     Active Substance: LOSARTAN\LOSARTAN POTASSIUM
     Indication: Ventricular extrasystoles
     Route: 065

REACTIONS (3)
  - Drug ineffective [Unknown]
  - Exposure during pregnancy [Unknown]
  - Hyperthyroidism [Unknown]
